FAERS Safety Report 5064149-5 (Version None)
Quarter: 2006Q3

REPORT INFORMATION
  Report Type: 
  Country: None (occurrence: None)
  Receive Date: 20060728
  Receipt Date: 20050930
  Transmission Date: 20061208
  Serious: No
  Sender: FDA-Public Use
  Company Number: 2005127859

PATIENT
  Age: 2 Year
  Sex: Female

DRUGS (2)
  1. ZANTAC [Suspect]
     Route: 048
  2. PEDIACARE COLD + COUGH [Suspect]
     Dosage: 1TSP SINGLE DOSE
     Route: 048
     Dates: start: 20020101, end: 20050907

REACTIONS (1)
  - GASTROOESOPHAGEAL REFLUX DISEASE [None]
